FAERS Safety Report 18507258 (Version 2)
Quarter: 2022Q3

REPORT INFORMATION
  Report Type: Spontaneous
  Country: US (occurrence: US)
  Receive Date: 20201116
  Receipt Date: 20220919
  Transmission Date: 20221027
  Serious: No
  Sender: FDA-Public Use
  Company Number: US-PFIZER INC-2020445193

PATIENT
  Age: 67 Year
  Sex: Female

DRUGS (5)
  1. DOCETAXEL [Suspect]
     Active Substance: DOCETAXEL
     Indication: Breast cancer female
     Dosage: UNK
     Dates: start: 20181116, end: 20190301
  2. TAXOTERE [Concomitant]
     Active Substance: DOCETAXEL
     Dosage: 75 MG, CYCLIC
     Route: 042
     Dates: start: 20181116, end: 20200115
  3. CARBOPLATIN [Concomitant]
     Active Substance: CARBOPLATIN
     Dosage: UNK, CYCLIC (AUC 6 Q 21 D X 6, 6 CYCLES)
     Dates: start: 20181116, end: 20200115
  4. HERCEPTIN [Concomitant]
     Active Substance: TRASTUZUMAB
     Dosage: 8 MG/KG, CYCLIC (Q 21 D X 17 CYCLES)
     Route: 042
     Dates: start: 20181116, end: 20200115
  5. HERCEPTIN [Concomitant]
     Active Substance: TRASTUZUMAB
     Dosage: 6 MG/KG, CYCLIC (Q 21 D X 17 CYCLES)
     Route: 042
     Dates: start: 20181116, end: 20200115

REACTIONS (4)
  - Dacryostenosis acquired [Not Recovered/Not Resolved]
  - Dry eye [Unknown]
  - Lacrimation increased [Not Recovered/Not Resolved]
  - Lacrimal structure injury [Unknown]
